FAERS Safety Report 10880970 (Version 1)
Quarter: 2015Q1

REPORT INFORMATION
  Report Type: Spontaneous
  Country: ES (occurrence: None)
  Receive Date: 20150225
  Receipt Date: 20150225
  Transmission Date: 20150721
  Serious: Yes (Hospitalization, Other)
  Sender: FDA-Public Use
  Company Number: ES2014GSK041584

PATIENT
  Age: 34 Year
  Sex: Male
  Weight: 42 kg

DRUGS (3)
  1. CHEMOTHERAPY [Suspect]
     Active Substance: UNSPECIFIED INGREDIENT
  2. MARAVIROC [Suspect]
     Active Substance: MARAVIROC
     Indication: HIV INFECTION
  3. STRIBILD (COBICISTAT + ELVITEGRAVIR + EMTRICITABINE + TENOFOVIR DISOPROXIL FUMARATE) [Concomitant]

REACTIONS (1)
  - Pancytopenia [None]

NARRATIVE: CASE EVENT DATE: 20141218
